FAERS Safety Report 10311935 (Version 2)
Quarter: 2014Q4

REPORT INFORMATION
  Report Type: Spontaneous
  Country: US (occurrence: None)
  Receive Date: 20140715
  Receipt Date: 20141014
  Transmission Date: 20150528
  Serious: Yes (Other)
  Sender: FDA-Public Use
  Company Number: 2014-US-008407

PATIENT
  Age: 33 Year
  Sex: Female
  Weight: 49 kg

DRUGS (5)
  1. NUVIGIL [Concomitant]
     Active Substance: ARMODAFINIL
  2. RITALIN [Concomitant]
     Active Substance: METHYLPHENIDATE HYDROCHLORIDE
  3. XYREM [Suspect]
     Active Substance: SODIUM OXYBATE
     Indication: CATAPLEXY
     Route: 048
     Dates: start: 201405, end: 201406
  4. VALTREX (VALACYCLOVIR HYDROCHLORIDE) [Concomitant]
  5. XYREM [Suspect]
     Active Substance: SODIUM OXYBATE
     Indication: NARCOLEPSY
     Route: 048
     Dates: start: 201405, end: 201406

REACTIONS (4)
  - Cervix carcinoma [None]
  - Nausea [None]
  - Genital herpes [None]
  - Dysmenorrhoea [None]

NARRATIVE: CASE EVENT DATE: 201405
